FAERS Safety Report 25851991 (Version 1)
Quarter: 2025Q3

REPORT INFORMATION
  Report Type: Spontaneous
  Country: US (occurrence: US)
  Receive Date: 20250926
  Receipt Date: 20250926
  Transmission Date: 20251020
  Serious: No
  Sender: ROCHE
  Company Number: US-ROCHE-10000394478

PATIENT

DRUGS (1)
  1. INAVOLISIB [Suspect]
     Active Substance: INAVOLISIB
     Indication: Breast cancer
     Route: 065

REACTIONS (4)
  - Hyperglycaemia [Unknown]
  - Nausea [Unknown]
  - Vomiting [Unknown]
  - Drug intolerance [Unknown]
